FAERS Safety Report 16175504 (Version 2)
Quarter: 2019Q2

REPORT INFORMATION
  Report Type: Report from Study
  Country: CN (occurrence: CN)
  Receive Date: 20190409
  Receipt Date: 20190606
  Transmission Date: 20190711
  Serious: Yes (Hospitalization)
  Sender: FDA-Public Use
  Company Number: CN-TAKEDA-2019TUS020566

PATIENT
  Age: 27 Year
  Sex: Female
  Weight: 48.5 kg

DRUGS (26)
  1. METRONIDAZOLE. [Concomitant]
     Active Substance: METRONIDAZOLE
     Dosage: UNK
     Route: 042
     Dates: start: 20190128, end: 20190128
  2. HUMAN ALBUMIN [Concomitant]
     Active Substance: ALBUMIN HUMAN
     Dosage: 10 GRAM
     Route: 042
     Dates: start: 20190129, end: 20190203
  3. ENOXAPARIN SODIUM. [Concomitant]
     Active Substance: ENOXAPARIN SODIUM
     Dosage: UNK
     Route: 058
     Dates: start: 20190129, end: 20190214
  4. VEDOLIZUMAB [Suspect]
     Active Substance: VEDOLIZUMAB
     Indication: CROHN^S DISEASE
     Dosage: UNK
     Route: 042
     Dates: start: 20180528, end: 20181010
  5. POTASSIUM CHLORIDE. [Concomitant]
     Active Substance: POTASSIUM CHLORIDE
     Dosage: 2 GRAM
     Route: 042
     Dates: start: 20190128, end: 20190128
  6. SANDOSTATIN [Concomitant]
     Active Substance: OCTREOTIDE ACETATE
     Dosage: 0.6 MILLIGRAM
     Route: 042
     Dates: start: 20190128, end: 20190128
  7. PROTAMINE ZINC INSULIN INJECTION [Concomitant]
     Dosage: UNK
     Route: 042
     Dates: start: 20190129, end: 20190212
  8. MOXIFLOXACIN HYDROCHLORIDE. [Concomitant]
     Active Substance: MOXIFLOXACIN HYDROCHLORIDE
     Dosage: 0.4 GRAM
     Route: 042
     Dates: start: 20190128, end: 20190128
  9. HEPARIN SODIUM. [Concomitant]
     Active Substance: HEPARIN SODIUM
     Dosage: UNK
     Route: 042
     Dates: start: 20190129, end: 20190214
  10. POTASSIUM CHLORIDE. [Concomitant]
     Active Substance: POTASSIUM CHLORIDE
     Dosage: 1.5 GRAM
     Route: 042
     Dates: start: 20190129, end: 20190131
  11. AMINOPHENAZONE COMPOUND            /00333101/ [Concomitant]
     Dosage: UNK
     Route: 030
     Dates: start: 20190204, end: 20190205
  12. SODIUM GLYCEROPHOSPHATE [Concomitant]
     Active Substance: SODIUM GLYCEROPHOSPHATE
     Dosage: UNK
     Route: 042
     Dates: start: 20190201, end: 20190201
  13. GLUCOSE [Concomitant]
     Active Substance: DEXTROSE
     Dosage: UNK
     Route: 042
     Dates: start: 20190129, end: 20190130
  14. POTASSIUM CHLORIDE. [Concomitant]
     Active Substance: POTASSIUM CHLORIDE
     Dosage: 1 GRAM
     Route: 042
     Dates: start: 20190201, end: 20190201
  15. AMINOPHENAZONE COMPOUND            /00333101/ [Concomitant]
     Dosage: UNK
     Route: 030
     Dates: start: 20190131, end: 20190201
  16. LOXOPROFEN                         /00890702/ [Concomitant]
     Active Substance: LOXOPROFEN
     Dosage: UNK
     Route: 048
     Dates: start: 20190202, end: 20190207
  17. IMIPENEM AND CILASTATIN [Concomitant]
     Active Substance: CILASTATIN SODIUM\IMIPENEM
     Dosage: 1000 MILLIGRAM
     Route: 042
     Dates: start: 20190128, end: 20190206
  18. AMBROXOL HYDROCHLORIDE [Concomitant]
     Active Substance: AMBROXOL HYDROCHLORIDE
     Dosage: 90 MILLIGRAM
     Route: 042
     Dates: start: 20190129, end: 20190201
  19. LANSOPRAZOLE. [Concomitant]
     Active Substance: LANSOPRAZOLE
     Dosage: 30 MILLIGRAM
     Route: 042
     Dates: start: 20190129, end: 20190211
  20. PHLOROGLUCINOL [Concomitant]
     Active Substance: PHLOROGLUCINOL
     Dosage: 80 MILLIGRAM
     Route: 042
     Dates: start: 20190128, end: 20190128
  21. ATROX [Concomitant]
     Active Substance: ATORVASTATIN CALCIUM
     Dosage: UNK
     Route: 030
     Dates: start: 20190129, end: 20190129
  22. GLUCOSE + SODIUM CHLORIDE [Concomitant]
     Dosage: UNK
     Route: 042
     Dates: start: 20190128, end: 20190219
  23. DEXAMETHASONE SODIUM [Concomitant]
     Dosage: UNK
     Route: 042
     Dates: start: 20190203, end: 20190203
  24. SOMATOSTATIN [Concomitant]
     Active Substance: SOMATOSTATIN
     Dosage: 6 MILLIGRAM
     Route: 042
     Dates: start: 20190129, end: 20190208
  25. FUROSEMIDE. [Concomitant]
     Active Substance: FUROSEMIDE
     Dosage: 10 MILLIGRAM
     Route: 042
     Dates: start: 20190129, end: 20190212
  26. ACETYLCYSTEINE. [Concomitant]
     Active Substance: ACETYLCYSTEINE
     Dosage: 300 MILLIGRAM
     Dates: start: 20190129, end: 20190212

REACTIONS (1)
  - Fungal infection [Recovered/Resolved]

NARRATIVE: CASE EVENT DATE: 20190205
